FAERS Safety Report 4561619-0 (Version None)
Quarter: 2005Q1

REPORT INFORMATION
  Report Type: 
  Country: None (occurrence: None)
  Receive Date: 20050126
  Receipt Date: 20050124
  Transmission Date: 20050727
  Serious: Yes (Other)
  Sender: FDA-Public Use
  Company Number: CA-GLAXOSMITHKLINE-A0542006A

PATIENT
  Age: 34 Year
  Sex: Male

DRUGS (1)
  1. COMBIVIR [Suspect]
     Indication: BITE
     Dates: start: 20030101

REACTIONS (2)
  - AGGRESSION [None]
  - PERSONALITY CHANGE [None]
